FAERS Safety Report 23443954 (Version 1)
Quarter: 2024Q1

REPORT INFORMATION
  Report Type: Spontaneous
  Country: BR (occurrence: BR)
  Receive Date: 20240125
  Receipt Date: 20240125
  Transmission Date: 20240409
  Serious: Yes (Hospitalization)
  Sender: FDA-Public Use
  Company Number: BR-BAYER-2024A004091

PATIENT
  Age: 77 Year
  Sex: Female

DRUGS (1)
  1. NAPROXEN SODIUM [Suspect]
     Active Substance: NAPROXEN\NAPROXEN SODIUM
     Indication: Osteoarthritis
     Dosage: UNK

REACTIONS (3)
  - Loss of personal independence in daily activities [None]
  - Paralysis [None]
  - Drug ineffective [None]
